FAERS Safety Report 15611787 (Version 4)
Quarter: 2018Q4

REPORT INFORMATION
  Report Type: Report from Study
  Country: US (occurrence: US)
  Receive Date: 20181113
  Receipt Date: 20181218
  Transmission Date: 20190205
  Serious: Yes (Other)
  Sender: FDA-Public Use
  Company Number: US-ROCHE-2176491

PATIENT
  Age: 52 Year
  Sex: Male
  Weight: 85.8 kg

DRUGS (17)
  1. VENETOCLAX. [Suspect]
     Active Substance: VENETOCLAX
     Route: 048
     Dates: end: 20180901
  2. BENDAMUSTINE [Suspect]
     Active Substance: BENDAMUSTINE
     Indication: B-CELL LYMPHOMA
     Dosage: ON DAYS 1 AND 2 OF EACH CYCLE OVER 15 MINUTES?DATE OF LAST DOSE: 24/AUG/2018?LAST CYCLE 3 HAS DOSE 9
     Route: 042
     Dates: start: 20180823, end: 20181018
  3. DECADRON [Concomitant]
     Active Substance: DEXAMETHASONE
     Route: 042
     Dates: start: 20180824, end: 20180824
  4. VENETOCLAX. [Suspect]
     Active Substance: VENETOCLAX
     Route: 048
  5. VENETOCLAX. [Suspect]
     Active Substance: VENETOCLAX
     Indication: B-CELL LYMPHOMA
     Dosage: DOSE 800 MG ON DAY 1-10 OF LAST CYCLE NUMBER 3
     Route: 048
     Dates: start: 20180823, end: 20181026
  6. OBINUTUZUMAB. [Suspect]
     Active Substance: OBINUTUZUMAB
     Indication: B-CELL LYMPHOMA
     Dosage: 900 MG ON DAY 2?LAST CYCLE NO. 3, DOSE WAS 1000 MG
     Route: 042
     Dates: start: 20180823, end: 20181017
  7. OBINUTUZUMAB. [Suspect]
     Active Substance: OBINUTUZUMAB
     Route: 042
     Dates: start: 20180906
  8. ELITEK [Concomitant]
     Active Substance: RASBURICASE
     Dosage: IN 0.9 % NACL?LAST DOSE STOPPED ON: 24/AUG/2018
     Route: 042
     Dates: start: 20180824, end: 20180824
  9. SODIUM CHLORIDE. [Concomitant]
     Active Substance: SODIUM CHLORIDE
     Route: 040
     Dates: start: 20180824, end: 20180824
  10. SODIUM CHLORIDE. [Concomitant]
     Active Substance: SODIUM CHLORIDE
     Route: 040
     Dates: start: 20180824, end: 20180824
  11. VENETOCLAX. [Suspect]
     Active Substance: VENETOCLAX
     Route: 048
  12. OBINUTUZUMAB. [Suspect]
     Active Substance: OBINUTUZUMAB
     Dosage: IN NACL 0.9 %, 250 ML
     Route: 042
     Dates: start: 20180824
  13. BENADRYL [Concomitant]
     Active Substance: DIPHENHYDRAMINE HYDROCHLORIDE
     Route: 042
     Dates: start: 20180824, end: 20180824
  14. ZOFRAN [Concomitant]
     Active Substance: ONDANSETRON HYDROCHLORIDE
     Route: 042
     Dates: start: 20180824, end: 20180824
  15. VENETOCLAX. [Suspect]
     Active Substance: VENETOCLAX
     Route: 048
     Dates: start: 20180824
  16. OBINUTUZUMAB. [Suspect]
     Active Substance: OBINUTUZUMAB
     Dosage: DAY 8
     Route: 042
  17. TYLENOL [Concomitant]
     Active Substance: ACETAMINOPHEN
     Route: 048
     Dates: start: 20180824, end: 20180824

REACTIONS (3)
  - Tumour lysis syndrome [Recovered/Resolved]
  - Neutrophil count decreased [Recovered/Resolved]
  - White blood cell count decreased [Recovered/Resolved]

NARRATIVE: CASE EVENT DATE: 20180824
